FAERS Safety Report 6252130-X (Version None)
Quarter: 2009Q2

REPORT INFORMATION
  Report Type: 
  Country: None (occurrence: None)
  Receive Date: 20090630
  Receipt Date: 20050815
  Transmission Date: 20091009
  Serious: Yes (Death)
  Sender: FDA-Public Use
  Company Number: US-ROCHE-639143

PATIENT
  Sex: Male

DRUGS (15)
  1. ENFUVIRTIDE [Suspect]
     Route: 065
     Dates: start: 20030812, end: 20050101
  2. AGENERASE [Concomitant]
     Dates: start: 19940501, end: 19991201
  3. AGENERASE [Concomitant]
     Dates: start: 20041130, end: 20050815
  4. EPIVIR [Concomitant]
     Dosage: FREQUENCY: QD
     Dates: start: 19940501, end: 19991201
  5. EPIVIR [Concomitant]
     Dosage: FREQUENCY: QD
     Dates: start: 19991201, end: 20050119
  6. EPIVIR [Concomitant]
     Dosage: FREQUENCY: QD
     Dates: start: 20050119, end: 20050101
  7. RETROVIR [Concomitant]
     Dates: start: 19940501, end: 19940601
  8. VIDEX [Concomitant]
     Dosage: FREQUENCY: QD
     Dates: start: 19940501, end: 19940601
  9. ZERIT [Concomitant]
     Dates: start: 19940501, end: 19991201
  10. KALETRA [Concomitant]
     Dates: start: 19991201, end: 20050815
  11. NORVIR [Concomitant]
     Dates: start: 19991201, end: 20050101
  12. VIREAD [Concomitant]
     Dosage: FREQUENCY: QD
     Dates: start: 19991201, end: 20050815
  13. LEXIVA [Concomitant]
     Dates: start: 20050119, end: 20050101
  14. BACTRIM DS [Concomitant]
     Dosage: FREQUENCY: QD
     Dates: start: 19940501, end: 20050415
  15. ZITHROMAX [Concomitant]

REACTIONS (1)
  - HIV WASTING SYNDROME [None]
